FAERS Safety Report 9186185 (Version 1)
Quarter: 2013Q1

REPORT INFORMATION
  Report Type: Spontaneous
  Country: US (occurrence: None)
  Receive Date: 20120628
  Receipt Date: 20120628
  Transmission Date: 20140127
  Serious: Yes (Disabling)
  Sender: FDA-Public Use
  Company Number: PHEH2011US04021

PATIENT
  Age: 76 Year
  Sex: Female

DRUGS (10)
  1. RECLAST [Suspect]
     Indication: OSTEOPOROSIS
     Dosage: ONCE YEARLY
     Dates: start: 20110811
  2. FISH OIL (FISH OIL) [Concomitant]
  3. CALCIUM (CALCIUM) [Concomitant]
  4. VITAMIN D (ERGOCALCIFEROL) [Concomitant]
  5. GLUCOSAMINE (GLUCOSAMINE) [Concomitant]
  6. PROBIOTICA (LACTOBACILLUS REUTER) [Concomitant]
  7. SYNTHROID (LEVOTHYROXINE SODIUM) [Concomitant]
  8. CHLOROTHALIDONE (CHLORTALIDONE) [Concomitant]
  9. OMEPRAZOLE (OMEPRAZOLE) [Concomitant]
  10. LEXAPRO (ESCTALOPRAM OXALATE) [Concomitant]

REACTIONS (7)
  - Dizziness [None]
  - Pyrexia [None]
  - Arthralgia [None]
  - Headache [None]
  - Nausea [None]
  - Myalgia [None]
  - Chills [None]
